FAERS Safety Report 14290178 (Version 1)
Quarter: 2017Q4

REPORT INFORMATION
  Report Type: Spontaneous
  Country: US (occurrence: None)
  Receive Date: 20171215
  Receipt Date: 20171215
  Transmission Date: 20180321
  Serious: Yes (Death)
  Sender: FDA-Public Use
  Company Number: None

PATIENT
  Age: 76 Year
  Sex: Male
  Weight: 63.5 kg

DRUGS (4)
  1. MIRCERA [Suspect]
     Active Substance: METHOXY POLYETHYLENE GLYCOL-EPOETIN BETA
     Indication: NEPHROPATHY
     Dosage: ROUTE - INTRAVENOUS PUSH
     Route: 042
     Dates: start: 20171122, end: 20171122
  2. VENOFER [Concomitant]
     Active Substance: IRON SUCROSE
  3. HECTOROL [Concomitant]
     Active Substance: DOXERCALCIFEROL
  4. MIRCERA [Suspect]
     Active Substance: METHOXY POLYETHYLENE GLYCOL-EPOETIN BETA
     Indication: ANAEMIA
     Dosage: ROUTE - INTRAVENOUS PUSH
     Route: 042
     Dates: start: 20171122, end: 20171122

REACTIONS (3)
  - Blood pressure systolic increased [None]
  - Unresponsive to stimuli [None]
  - Heart rate increased [None]

NARRATIVE: CASE EVENT DATE: 20171122
